FAERS Safety Report 8920671 (Version 1)
Quarter: 2012Q4

REPORT INFORMATION
  Report Type: 
  Country: CA (occurrence: CA)
  Receive Date: 20121122
  Receipt Date: 20121122
  Transmission Date: 20130627
  Serious: Yes (Other)
  Sender: FDA-Public Use
  Company Number: CA-MERCK-1211CAN000787

PATIENT
  Sex: Female

DRUGS (9)
  1. SAPHRIS [Suspect]
     Indication: BIPOLAR DISORDER
     Dosage: 10 mg, qd
     Route: 060
     Dates: start: 201209, end: 20121030
  2. ABILIFY [Concomitant]
     Indication: BIPOLAR DISORDER
     Dosage: 2.5 mg, qd
     Route: 048
  3. ZYBAN [Concomitant]
     Indication: PRODUCT USED FOR UNKNOWN INDICATION
     Dosage: UNK, qd
     Route: 048
  4. LITHIUM [Concomitant]
     Indication: BIPOLAR DISORDER
     Dosage: 600 mg, qd
     Route: 048
  5. SYNTHROID [Concomitant]
     Indication: THYROID ADENOMA
     Route: 048
  6. COVERSYL (PERINDOPRIL ARGININE) [Concomitant]
     Indication: HYPERTENSION
     Dosage: 4 mg, qd
     Route: 048
  7. INDAPAMIDE [Concomitant]
     Indication: PRODUCT USED FOR UNKNOWN INDICATION
  8. RABEPRAZOLE SODIUM [Concomitant]
     Indication: PRODUCT USED FOR UNKNOWN INDICATION
     Dosage: UNK, qd
  9. ADVAIR [Concomitant]
     Indication: ASTHMA
     Dosage: UNK

REACTIONS (4)
  - Muscle tightness [Recovered/Resolved]
  - Musculoskeletal stiffness [Recovered/Resolved]
  - Inappropriate schedule of drug administration [Recovered/Resolved]
  - Hypersensitivity [Recovered/Resolved]
